FAERS Safety Report 12675637 (Version 1)
Quarter: 2016Q3

REPORT INFORMATION
  Report Type: Spontaneous
  Country: US (occurrence: None)
  Receive Date: 20160822
  Receipt Date: 20160822
  Transmission Date: 20161109
  Serious: No
  Sender: FDA-Public Use
  Company Number: None

PATIENT
  Age: 76 Year
  Sex: Male
  Weight: 108.86 kg

DRUGS (1)
  1. LOSARTAN POTASSIUM, 50 MG [Suspect]
     Active Substance: LOSARTAN POTASSIUM
     Indication: HYPERTENSION
     Route: 048
     Dates: start: 20160115

REACTIONS (3)
  - Product substitution issue [None]
  - Blood pressure increased [None]
  - Product quality issue [None]

NARRATIVE: CASE EVENT DATE: 20160118
